FAERS Safety Report 16014636 (Version 1)
Quarter: 2019Q1

REPORT INFORMATION
  Report Type: Spontaneous
  Country: US (occurrence: US)
  Receive Date: 20190227
  Receipt Date: 20190227
  Transmission Date: 20190418
  Serious: No
  Sender: FDA-Public Use
  Company Number: US-GE HEALTHCARE LIFE SCIENCES-2019CSU000929

PATIENT
  Age: 68 Year
  Sex: Male

DRUGS (8)
  1. OPTISON [Suspect]
     Active Substance: ALBUMIN HUMAN
     Indication: DIAGNOSTIC PROCEDURE
     Dosage: 1.5 ML, SINGLE
     Route: 042
     Dates: start: 20190216, end: 20190216
  2. HUMALOG [Concomitant]
     Active Substance: INSULIN LISPRO
  3. PLAVIX [Concomitant]
     Active Substance: CLOPIDOGREL BISULFATE
  4. KOREG [Concomitant]
     Active Substance: CARVEDILOL
  5. OPTISON [Suspect]
     Active Substance: ALBUMIN HUMAN
     Indication: CARDIAC FAILURE
  6. NORVASC [Concomitant]
     Active Substance: AMLODIPINE BESYLATE
  7. LASIX [Concomitant]
     Active Substance: FUROSEMIDE
  8. CRESTOR [Concomitant]
     Active Substance: ROSUVASTATIN CALCIUM

REACTIONS (2)
  - Nausea [Recovered/Resolved]
  - Vomiting [Recovered/Resolved]

NARRATIVE: CASE EVENT DATE: 20190216
